FAERS Safety Report 5607681-5 (Version None)
Quarter: 2008Q1

REPORT INFORMATION
  Report Type: 
  Country: None (occurrence: None)
  Receive Date: 20080130
  Receipt Date: 20080116
  Transmission Date: 20080703
  Serious: Yes (Other)
  Sender: FDA-Public Use
  Company Number: FR-AMGEN-US261779

PATIENT
  Sex: Female

DRUGS (3)
  1. ENBREL [Suspect]
     Indication: RHEUMATOID ARTHRITIS
     Dosage: UNKNOWN
     Route: 058
     Dates: start: 20070301, end: 20071221
  2. NOVATREX [Suspect]
     Indication: RHEUMATOID ARTHRITIS
     Dosage: 10 MG TOTAL WEEKLY
     Route: 048
  3. CORTANCYL [Concomitant]
     Indication: RHEUMATOID ARTHRITIS

REACTIONS (5)
  - CHEST X-RAY ABNORMAL [None]
  - COUGH [None]
  - CREPITATIONS [None]
  - DYSPNOEA [None]
  - HYPOXIA [None]
